FAERS Safety Report 15346159 (Version 1)
Quarter: 2018Q3

REPORT INFORMATION
  Report Type: Spontaneous
  Country: DE (occurrence: DE)
  Receive Date: 20180904
  Receipt Date: 20180904
  Transmission Date: 20181010
  Serious: Yes (Other)
  Sender: FDA-Public Use
  Company Number: DE-SUN PHARMACEUTICAL INDUSTRIES LTD-2018R1-183413

PATIENT
  Age: 63 Year
  Sex: Female

DRUGS (12)
  1. L?THYROXIN [Concomitant]
     Active Substance: LEVOTHYROXINE SODIUM
     Indication: PRODUCT USED FOR UNKNOWN INDICATION
     Dosage: 25 ?G, DAILY
     Route: 065
  2. MELPERON [Concomitant]
     Active Substance: MELPERONE
     Indication: PRODUCT USED FOR UNKNOWN INDICATION
     Dosage: 25 MG, DAILY
     Route: 048
     Dates: start: 20171201, end: 20180108
  3. GABAPENTIN. [Suspect]
     Active Substance: GABAPENTIN
     Dosage: 900 MG, DAILY
     Route: 048
     Dates: start: 20171129, end: 20171129
  4. GABAPENTIN. [Suspect]
     Active Substance: GABAPENTIN
     Dosage: 1000 MG, DAILY
     Route: 048
     Dates: start: 20171130, end: 20171211
  5. GABAPENTIN. [Suspect]
     Active Substance: GABAPENTIN
     Dosage: 300 MG, DAILY
     Route: 048
     Dates: start: 20171219
  6. METOPROLOL. [Concomitant]
     Active Substance: METOPROLOL
     Indication: PRODUCT USED FOR UNKNOWN INDICATION
     Dosage: 50 MG, DAILY
     Route: 048
  7. SIMVASTATIN. [Concomitant]
     Active Substance: SIMVASTATIN
     Indication: PRODUCT USED FOR UNKNOWN INDICATION
     Dosage: 20 MG, DAILY
     Route: 048
  8. GABAPENTIN. [Suspect]
     Active Substance: GABAPENTIN
     Indication: PRODUCT USED FOR UNKNOWN INDICATION
     Dosage: 700 MG, DAILY
     Route: 048
     Dates: end: 20171128
  9. PANTOPRAZOL [Concomitant]
     Active Substance: PANTOPRAZOLE SODIUM
     Indication: PRODUCT USED FOR UNKNOWN INDICATION
     Dosage: 20 MG, DAILY
     Route: 048
  10. GABAPENTIN. [Suspect]
     Active Substance: GABAPENTIN
     Dosage: 600 MG, DAILY
     Route: 048
     Dates: start: 20171212, end: 20171218
  11. CANDESARTAN. [Concomitant]
     Active Substance: CANDESARTAN
     Indication: PRODUCT USED FOR UNKNOWN INDICATION
     Dosage: 2 MG, DAILY
     Route: 048
  12. TORASEMID [Concomitant]
     Active Substance: TORSEMIDE
     Indication: PRODUCT USED FOR UNKNOWN INDICATION
     Dosage: 10 MG, DAILY
     Route: 065

REACTIONS (2)
  - Aphasia [Recovered/Resolved]
  - Speech disorder [Recovered/Resolved]

NARRATIVE: CASE EVENT DATE: 20171201
